FAERS Safety Report 19722837 (Version 2)
Quarter: 2021Q3

REPORT INFORMATION
  Report Type: Spontaneous
  Country: BR (occurrence: BR)
  Receive Date: 20210819
  Receipt Date: 20210830
  Transmission Date: 20211014
  Serious: Yes (Other)
  Sender: FDA-Public Use
  Company Number: BR-TAKEDA-2021TUS051525

PATIENT
  Age: 41 Year
  Sex: Male
  Weight: 85 kg

DRUGS (2)
  1. VALSARTAN. [Concomitant]
     Active Substance: VALSARTAN
     Indication: HYPERTENSION
     Dosage: 160 MILLIGRAM, QD
     Route: 065
  2. DEXILANT [Suspect]
     Active Substance: DEXLANSOPRAZOLE
     Indication: OESOPHAGITIS
     Dosage: 30 MILLIGRAM, QD
     Route: 065
     Dates: start: 202108, end: 202108

REACTIONS (3)
  - Blood pressure increased [Unknown]
  - Hypertensive crisis [Unknown]
  - Off label use [Unknown]

NARRATIVE: CASE EVENT DATE: 202108
